FAERS Safety Report 18055162 (Version 1)
Quarter: 2020Q3

REPORT INFORMATION
  Report Type: Spontaneous
  Country: US (occurrence: US)
  Receive Date: 20200722
  Receipt Date: 20200722
  Transmission Date: 20201103
  Serious: No
  Sender: FDA-Public Use
  Company Number: US-ACCORD-179855

PATIENT
  Sex: Female

DRUGS (2)
  1. AMITRIPTYLINE [Suspect]
     Active Substance: AMITRIPTYLINE
     Indication: CHEST DISCOMFORT
     Dosage: ONE HALF TABLET DAILY
     Dates: start: 2016
  2. AMITRIPTYLINE [Suspect]
     Active Substance: AMITRIPTYLINE
     Indication: CHEST DISCOMFORT
     Dosage: NEW REFILL LAST WEDNESDAY
     Dates: start: 20200415

REACTIONS (4)
  - Feeling abnormal [Unknown]
  - Chest discomfort [Unknown]
  - Off label use [Unknown]
  - Wrong technique in product usage process [Unknown]
